FAERS Safety Report 13385154 (Version 2)
Quarter: 2017Q2

REPORT INFORMATION
  Report Type: Spontaneous
  Country: US (occurrence: US)
  Receive Date: 20170329
  Receipt Date: 20170406
  Transmission Date: 20170830
  Serious: Yes (Other)
  Sender: FDA-Public Use
  Company Number: US-CELGENEUS-USA-2017039454

PATIENT
  Age: 70 Year
  Sex: Female
  Weight: 66.74 kg

DRUGS (1)
  1. REVLIMID [Suspect]
     Active Substance: LENALIDOMIDE
     Indication: PLASMA CELL MYELOMA
     Dosage: 25 MILLIGRAM
     Route: 048
     Dates: start: 20161109

REACTIONS (4)
  - Memory impairment [Unknown]
  - Limb discomfort [Unknown]
  - Cataract [Unknown]
  - Mass [Unknown]

NARRATIVE: CASE EVENT DATE: 201703
